FAERS Safety Report 9323386 (Version 3)
Quarter: 2013Q3

REPORT INFORMATION
  Report Type: Spontaneous
  Country: PT (occurrence: PT)
  Receive Date: 20130603
  Receipt Date: 20130711
  Transmission Date: 20140515
  Serious: Yes (Other)
  Sender: FDA-Public Use
  Company Number: PT-ROCHE-1231522

PATIENT
  Age: 37 Year
  Sex: Male

DRUGS (2)
  1. XOLAIR [Suspect]
     Indication: DERMATITIS ATOPIC
     Dosage: 15/15 DAYS
     Route: 065
     Dates: start: 201302, end: 201306
  2. XOLAIR [Suspect]
     Indication: OFF LABEL USE
     Route: 065
     Dates: start: 201306, end: 201306

REACTIONS (4)
  - Blood immunoglobulin E increased [Recovering/Resolving]
  - Eczema [Recovering/Resolving]
  - Drug ineffective [Unknown]
  - Off label use [Unknown]
